FAERS Safety Report 10758836 (Version 1)
Quarter: 2015Q1

REPORT INFORMATION
  Report Type: Spontaneous
  Country: US (occurrence: None)
  Receive Date: 20150123
  Receipt Date: 20150123
  Transmission Date: 20150721
  Serious: No
  Sender: FDA-Public Use
  Company Number: TPA2013A02035

PATIENT
  Age: 58 Year
  Sex: Female
  Weight: 102.5 kg

DRUGS (19)
  1. COREG [Concomitant]
     Active Substance: CARVEDILOL
  2. XANAX [Concomitant]
     Active Substance: ALPRAZOLAM
  3. MUCINEX (GUAIFENESIN) [Concomitant]
  4. HEPARIN [Concomitant]
     Active Substance: HEPARIN SODIUM
  5. LEVAQUIN [Concomitant]
     Active Substance: LEVOFLOXACIN
  6. ZOCOR [Concomitant]
     Active Substance: SIMVASTATIN
  7. EPOETIN ALFA [Concomitant]
     Active Substance: ERYTHROPOIETIN
  8. AMITRIPTYLINE [Concomitant]
     Active Substance: AMITRIPTYLINE
  9. SENSIPAR (CINACALCET HYDROCHLORIDE) [Concomitant]
  10. NOVOLOG [Concomitant]
     Active Substance: INSULIN ASPART
  11. COUMADIN [Concomitant]
     Active Substance: WARFARIN SODIUM
  12. ZEMPLAR [Concomitant]
     Active Substance: PARICALCITOL
  13. OMONTYS [Suspect]
     Active Substance: PEGINESATIDE
     Indication: NEPHROGENIC ANAEMIA
     Route: 042
     Dates: start: 20130208, end: 20130208
  14. PHOSLO [Concomitant]
     Active Substance: CALCIUM ACETATE
  15. PRILOSEC (OMEPRAZOLE) [Concomitant]
     Active Substance: OMEPRAZOLE MAGNESIUM
  16. LANTUS [Concomitant]
     Active Substance: INSULIN GLARGINE
  17. RENVELA [Concomitant]
     Active Substance: SEVELAMER CARBONATE
  18. GABAPENTIN. [Concomitant]
     Active Substance: GABAPENTIN
  19. XALATAN [Concomitant]
     Active Substance: LATANOPROST

REACTIONS (3)
  - Urticaria [None]
  - Pruritus [None]
  - Inflammation [None]

NARRATIVE: CASE EVENT DATE: 20130208
